FAERS Safety Report 9853337 (Version 3)
Quarter: 2014Q1

REPORT INFORMATION
  Report Type: Spontaneous
  Country: US (occurrence: US)
  Receive Date: 20140129
  Receipt Date: 20140217
  Transmission Date: 20141002
  Serious: Yes (Other)
  Sender: FDA-Public Use
  Company Number: PHHY2014US004647

PATIENT
  Age: 24 Year
  Sex: Male

DRUGS (19)
  1. LIORESAL INTRATECAL [Suspect]
     Indication: MUSCLE SPASTICITY
     Dosage: 420 UG/DAY
     Route: 037
  2. LIORESAL INTRATECAL [Suspect]
     Dosage: 350 UG/DAY
     Route: 037
  3. LIORESAL INTRATECAL [Suspect]
     Dosage: 100 UG, DAILY
     Route: 037
  4. BACLOFEN [Suspect]
     Dosage: UNK UKN, UNK
     Route: 048
  5. BACLOFEN [Suspect]
     Dosage: 20 MG, QID
     Route: 048
  6. MIACALCIN [Suspect]
     Dosage: UNK UKN, UNK
  7. ALBUTEROL SULFATE TABLETS USP [Suspect]
     Dosage: UNK UKN, UNK
  8. HEPARIN [Suspect]
     Dosage: UNK UKN, UNK
  9. COLACE [Suspect]
     Dosage: UNK UKN, UNK
  10. PULMICORT [Suspect]
     Dosage: UNK UKN, UNK
  11. MIRALAX [Suspect]
     Dosage: UNK UKN, UNK
  12. KEPPRA [Suspect]
     Dosage: UNK UKN, UNK
  13. CARNITINE [Suspect]
     Dosage: UNK UKN, UNK
  14. MULTIPLE VITAMINS [Suspect]
     Dosage: UNK UKN, UNK
  15. ACIFOL//FOLIC ACID [Suspect]
     Dosage: UNK UKN, UNK
  16. CALCIUM [Suspect]
     Dosage: UNK UKN, UNK
  17. FLONASE [Suspect]
     Dosage: UNK UKN, UNK
  18. BACTROBAN /UNK/ [Suspect]
     Dosage: UNK UKN, UNK
  19. URECHOLINE [Suspect]
     Dosage: UNK UKN, UNK

REACTIONS (9)
  - Feeding tube complication [Not Recovered/Not Resolved]
  - Abdominal distension [Not Recovered/Not Resolved]
  - Decubitus ulcer [Not Recovered/Not Resolved]
  - Wound infection staphylococcal [Recovered/Resolved]
  - Clonus [Unknown]
  - Skin disorder [Unknown]
  - Implant site erosion [Unknown]
  - Ileus [Unknown]
  - Drug withdrawal syndrome [Unknown]
